FAERS Safety Report 5255685-7 (Version None)
Quarter: 2007Q1

REPORT INFORMATION
  Report Type: 
  Country: None (occurrence: None)
  Receive Date: 20070305
  Receipt Date: 20070221
  Transmission Date: 20070707
  Serious: Yes (Death)
  Sender: FDA-Public Use
  Company Number: DE-PFIZER INC-2007009648

PATIENT
  Sex: Male
  Weight: 76 kg

DRUGS (14)
  1. SU-011,248 [Suspect]
     Indication: METASTATIC RENAL CELL CARCINOMA
     Route: 048
     Dates: start: 20061222, end: 20070117
  2. BISOPROLOL [Concomitant]
     Route: 048
  3. EPOETIN ALFA [Concomitant]
     Route: 058
  4. SODIUM PICOSULFATE [Concomitant]
     Route: 048
  5. METAMIZOLE [Concomitant]
     Route: 048
  6. ESOMEPRAZOLE MAGNESIUM [Concomitant]
     Route: 048
  7. OXYCODONE HCL [Concomitant]
     Route: 048
  8. PREGABALIN [Concomitant]
     Route: 048
  9. ACETYLDIGOXIN [Concomitant]
     Route: 048
  10. DIMETICONE [Concomitant]
     Route: 048
  11. MOVICOL [Concomitant]
     Route: 048
  12. METOCLOPRAMIDE [Concomitant]
     Route: 048
  13. TRIAMTERENE AND HYDROCHLOROTHIAZIDE [Concomitant]
     Route: 048
  14. MEGESTROL ACETATE [Concomitant]
     Route: 048

REACTIONS (1)
  - PNEUMONIA [None]
